FAERS Safety Report 4698175-2 (Version None)
Quarter: 2005Q2

REPORT INFORMATION
  Report Type: 
  Country: None (occurrence: None)
  Receive Date: 20050623
  Receipt Date: 20050615
  Transmission Date: 20051028
  Serious: Yes (Hospitalization, Other)
  Sender: FDA-Public Use
  Company Number: 02-07-0619

PATIENT
  Age: 4 Year
  Sex: Male

DRUGS (2)
  1. BECLOMETHASONE DIPROPIONATE [Suspect]
     Indication: ASTHMA
     Route: 055
  2. ALBUTEROL [Suspect]
     Indication: ASTHMA
     Route: 055

REACTIONS (5)
  - AGITATION [None]
  - DRUG INTOLERANCE [None]
  - HALLUCINATION [None]
  - HOSTILITY [None]
  - OVERDOSE [None]
